FAERS Safety Report 20659684 (Version 1)
Quarter: 2022Q1

REPORT INFORMATION
  Report Type: Spontaneous
  Country: US (occurrence: US)
  Receive Date: 20220331
  Receipt Date: 20220331
  Transmission Date: 20220423
  Serious: No
  Sender: FDA-Public Use
  Company Number: US-MYLANLABS-2022M1017177

PATIENT
  Age: 40 Year
  Sex: Female

DRUGS (1)
  1. XULANE [Suspect]
     Active Substance: ETHINYL ESTRADIOL\NORELGESTROMIN
     Indication: Haemorrhage
     Dosage: 150/35 MICROGRAM,QD
     Route: 062
     Dates: start: 20220211

REACTIONS (2)
  - Product adhesion issue [Unknown]
  - Off label use [Unknown]

NARRATIVE: CASE EVENT DATE: 20220211
